FAERS Safety Report 21478732 (Version 1)
Quarter: 2022Q4

REPORT INFORMATION
  Report Type: Spontaneous
  Country: CN (occurrence: CN)
  Receive Date: 20221019
  Receipt Date: 20221019
  Transmission Date: 20230113
  Serious: Yes (Hospitalization, Other)
  Sender: FDA-Public Use
  Company Number: None

PATIENT
  Age: 32 Year
  Sex: Male
  Weight: 51.5 kg

DRUGS (5)
  1. CYCLOPHOSPHAMIDE [Suspect]
     Active Substance: CYCLOPHOSPHAMIDE
     Indication: Precursor T-lymphoblastic lymphoma/leukaemia
     Dosage: 483 MG, Q12H, D1-3
     Route: 041
     Dates: start: 20221001, end: 20221003
  2. PEGASPARGASE [Suspect]
     Active Substance: PEGASPARGASE
     Indication: Precursor T-lymphoblastic lymphoma/leukaemia
     Dosage: 3750U, QD, D1
     Route: 030
     Dates: start: 20221001, end: 20221001
  3. DOXORUBICIN HYDROCHLORIDE [Suspect]
     Active Substance: DOXORUBICIN HYDROCHLORIDE
     Indication: Precursor T-lymphoblastic lymphoma/leukaemia
     Dosage: 80.5 MG, QD, D4
     Route: 042
     Dates: start: 20221004, end: 20221004
  4. VINCRISTINE SULFATE [Suspect]
     Active Substance: VINCRISTINE SULFATE
     Indication: Precursor T-lymphoblastic lymphoma/leukaemia
     Dosage: 2 MG, QD, D4/D11
     Route: 041
     Dates: start: 20221004, end: 20221004
  5. DEXAMETHASONE ACETATE [Suspect]
     Active Substance: DEXAMETHASONE ACETATE
     Indication: Precursor T-lymphoblastic lymphoma/leukaemia
     Dosage: 40.5 MG, QD, D1-4, D11-14
     Route: 048
     Dates: start: 20221001, end: 20221004

REACTIONS (5)
  - Milia [Not Recovered/Not Resolved]
  - Rash pustular [Not Recovered/Not Resolved]
  - Folliculitis [Not Recovered/Not Resolved]
  - Acute generalised exanthematous pustulosis [Unknown]
  - Rash [Unknown]

NARRATIVE: CASE EVENT DATE: 20221008
